FAERS Safety Report 8809789 (Version 2)
Quarter: 2013Q3

REPORT INFORMATION
  Report Type: Spontaneous
  Country: US (occurrence: US)
  Receive Date: 20120926
  Receipt Date: 20130819
  Transmission Date: 20140515
  Serious: No
  Sender: FDA-Public Use
  Company Number: US-ASTRAZENECA-2012SE72859

PATIENT
  Age: 60 Year
  Sex: Female

DRUGS (4)
  1. SEROQUEL [Suspect]
     Indication: SLEEP DISORDER
     Route: 048
  2. NEXIUM [Suspect]
     Indication: GASTROOESOPHAGEAL REFLUX DISEASE
     Dosage: PRN
     Route: 048
     Dates: start: 2009
  3. LISINOPRIL [Suspect]
     Route: 048
  4. HYDROCHLOROTHIAZIDE [Concomitant]
     Route: 048

REACTIONS (3)
  - Insomnia [Unknown]
  - Drug dose omission [Unknown]
  - Intentional drug misuse [Unknown]
